FAERS Safety Report 24922119 (Version 1)
Quarter: 2025Q1

REPORT INFORMATION
  Report Type: Spontaneous
  Country: GB (occurrence: GB)
  Receive Date: 20250204
  Receipt Date: 20250204
  Transmission Date: 20250409
  Serious: Yes (Life-Threatening)
  Sender: SUNOVION
  Company Number: GB-CNX THERAPEUTICS-2025CNX000046

PATIENT

DRUGS (3)
  1. LATUDA [Suspect]
     Active Substance: LURASIDONE HYDROCHLORIDE
     Indication: Drug titration
     Dosage: 17.5 MG, QD
     Route: 048
     Dates: start: 202407, end: 202407
  2. VITAMINS [Concomitant]
     Active Substance: VITAMINS
     Indication: Mental disorder
     Route: 065
  3. VITAMINS [Concomitant]
     Active Substance: VITAMINS
     Indication: Movement disorder

REACTIONS (3)
  - Pain [Recovered/Resolved]
  - Hypersomnia [Recovered/Resolved]
  - Product use in unapproved indication [Recovered/Resolved]

NARRATIVE: CASE EVENT DATE: 20240701
